FAERS Safety Report 7286652-X (Version None)
Quarter: 2011Q1

REPORT INFORMATION
  Report Type: 
  Country: None (occurrence: None)
  Receive Date: 20110210
  Receipt Date: 20110207
  Transmission Date: 20110831
  Serious: Yes (Other)
  Sender: FDA-Public Use
  Company Number: GB-PFIZER INC-2010154581

PATIENT

DRUGS (2)
  1. ZOLEDRONIC ACID [Suspect]
     Indication: METASTASES TO BONE
  2. SUNITINIB MALATE [Suspect]
     Indication: RENAL CELL CARCINOMA

REACTIONS (1)
  - OSTEONECROSIS OF JAW [None]
